FAERS Safety Report 9611164 (Version 1)
Quarter: 2013Q4

REPORT INFORMATION
  Report Type: Spontaneous
  Country: IT (occurrence: IT)
  Receive Date: 20131009
  Receipt Date: 20131009
  Transmission Date: 20140711
  Serious: Yes (Hospitalization)
  Sender: FDA-Public Use
  Company Number: IT-BAXTER-2013BAX039512

PATIENT
  Age: 71 Year
  Sex: Male

DRUGS (2)
  1. MANNITOL [Suspect]
     Indication: TRANSIENT ISCHAEMIC ATTACK
     Route: 042
  2. CLONIDINE [Concomitant]
     Indication: HYPERTENSION
     Route: 065

REACTIONS (2)
  - Toxicity to various agents [Recovered/Resolved]
  - Renal failure acute [Recovered/Resolved]
